FAERS Safety Report 5353095-5 (Version None)
Quarter: 2007Q2

REPORT INFORMATION
  Report Type: 
  Country: None (occurrence: None)
  Receive Date: 20070611
  Receipt Date: 20070530
  Transmission Date: 20071010
  Serious: Yes (Other)
  Sender: FDA-Public Use
  Company Number: US-PFIZER INC-2007045360

PATIENT
  Sex: Male

DRUGS (1)
  1. CHANTIX [Suspect]
     Dates: start: 20070526, end: 20070527

REACTIONS (6)
  - ACTIVITIES OF DAILY LIVING IMPAIRED [None]
  - FOAMING AT MOUTH [None]
  - HEAD DISCOMFORT [None]
  - NAUSEA [None]
  - SALIVARY HYPERSECRETION [None]
  - UNEVALUABLE EVENT [None]
